FAERS Safety Report 13076615 (Version 1)
Quarter: 2016Q4

REPORT INFORMATION
  Report Type: Spontaneous
  Country: BR (occurrence: BR)
  Receive Date: 20161230
  Receipt Date: 20161230
  Transmission Date: 20170207
  Serious: Yes (Hospitalization, Other)
  Sender: FDA-Public Use
  Company Number: BR-GILEAD-2016-0250777

PATIENT
  Age: 35 Year
  Sex: Male
  Weight: 87 kg

DRUGS (2)
  1. SOVALDI [Suspect]
     Active Substance: SOFOSBUVIR
     Indication: HEPATITIS C
     Dosage: 400 MG, UNK
     Route: 048
     Dates: start: 20160424, end: 20160711
  2. DAKLINZA [Concomitant]
     Active Substance: DACLATASVIR
     Indication: HEPATITIS C
     Dosage: 60 MG, UNK
     Route: 048

REACTIONS (11)
  - Suicidal ideation [Recovered/Resolved]
  - Decreased appetite [Unknown]
  - Fear [Unknown]
  - Insomnia [Unknown]
  - Persecutory delusion [Unknown]
  - Headache [Recovered/Resolved]
  - Pruritus [Recovered/Resolved]
  - Restlessness [Unknown]
  - Dyspepsia [Recovered/Resolved]
  - Anxiety [Unknown]
  - Diarrhoea [Unknown]

NARRATIVE: CASE EVENT DATE: 20160424
